FAERS Safety Report 8293718-4 (Version None)
Quarter: 2012Q2

REPORT INFORMATION
  Report Type: 
  Country: None (occurrence: None)
  Receive Date: 20120418
  Receipt Date: 20120416
  Transmission Date: 20120825
  Serious: Yes (Other)
  Sender: FDA-Public Use
  Company Number: GB-AMGEN-GBRSP2012023710

PATIENT
  Age: 68 Year
  Sex: Female

DRUGS (3)
  1. PROLIA [Suspect]
     Indication: OSTEOPOROSIS
     Dosage: 60 MG, UNK
     Route: 058
     Dates: start: 20110406
  2. CALCIUM + VITAMIN D                /01817601/ [Concomitant]
  3. OMEPRAZOLE [Concomitant]

REACTIONS (2)
  - VISUAL IMPAIRMENT [None]
  - RETINAL HAEMORRHAGE [None]
